FAERS Safety Report 6839922-0 (Version None)
Quarter: 2010Q3

REPORT INFORMATION
  Report Type: 
  Country: None (occurrence: None)
  Receive Date: 20100714
  Receipt Date: 20100709
  Transmission Date: 20110219
  Serious: Yes (Hospitalization)
  Sender: FDA-Public Use
  Company Number: US-GILEAD-2010-0030275

PATIENT
  Sex: Female
  Weight: 51.8 kg

DRUGS (11)
  1. LETAIRIS [Suspect]
     Indication: PULMONARY ARTERIAL HYPERTENSION
     Dates: start: 20091007
  2. REVATIO [Concomitant]
  3. LASIX [Concomitant]
  4. SPIRONOLACTONE [Concomitant]
  5. ATENOLOL [Concomitant]
  6. ASPIRIN [Concomitant]
  7. SYNTHROID [Concomitant]
  8. POT CL [Concomitant]
  9. LOVAZA [Concomitant]
  10. ACIPHEX [Concomitant]
  11. VYTORIN [Concomitant]

REACTIONS (3)
  - ANAEMIA [None]
  - DYSPNOEA [None]
  - OXYGEN SATURATION DECREASED [None]
